FAERS Safety Report 7891944-7 (Version None)
Quarter: 2011Q4

REPORT INFORMATION
  Report Type: 
  Country: None (occurrence: None)
  Receive Date: 20111103
  Receipt Date: 20110812
  Transmission Date: 20120403
  Serious: No
  Sender: FDA-Public Use
  Company Number: US-AMGEN-USASP2011041073

PATIENT
  Age: 54 Year
  Sex: Female

DRUGS (1)
  1. ENBREL [Suspect]
     Indication: PSORIATIC ARTHROPATHY
     Dosage: 50 MG, Q10WK
     Dates: start: 20100101

REACTIONS (9)
  - PAPULE [None]
  - ONYCHALGIA [None]
  - URINARY TRACT INFECTION [None]
  - SINUS HEADACHE [None]
  - BLISTER [None]
  - INAPPROPRIATE SCHEDULE OF DRUG ADMINISTRATION [None]
  - FUNGAL INFECTION [None]
  - FACIAL PAIN [None]
  - HEADACHE [None]
